FAERS Safety Report 9408633 (Version 1)
Quarter: 2013Q3

REPORT INFORMATION
  Report Type: Other
  Country: PL (occurrence: PL)
  Receive Date: 20130718
  Receipt Date: 20130718
  Transmission Date: 20140515
  Serious: Yes (Other)
  Sender: FDA-Public Use
  Company Number: PL-FRI-1000046794

PATIENT
  Sex: Male

DRUGS (2)
  1. DILTIAZEM [Suspect]
     Indication: ARRHYTHMIA PROPHYLAXIS
     Dosage: 60 MG
     Route: 048
  2. DILTIAZEM [Suspect]
     Dosage: 180 MG
     Route: 048

REACTIONS (1)
  - Atrial fibrillation [Recovered/Resolved]
